FAERS Safety Report 14407719 (Version 1)
Quarter: 2018Q1

REPORT INFORMATION
  Report Type: Spontaneous
  Country: US (occurrence: US)
  Receive Date: 20180117
  Receipt Date: 20180117
  Transmission Date: 20180509
  Serious: No
  Sender: FDA-Public Use
  Company Number: None

PATIENT
  Age: 84 Year
  Sex: Male
  Weight: 76.95 kg

DRUGS (1)
  1. AMIODARONE HCL 200MG [Suspect]
     Active Substance: AMIODARONE HYDROCHLORIDE
     Indication: ATRIAL FIBRILLATION
     Dosage: ?          QUANTITY:3 TABLET(S);?
     Route: 048

REACTIONS (9)
  - Abdominal discomfort [None]
  - Toxicity to various agents [None]
  - Vomiting [None]
  - Ill-defined disorder [None]
  - Asthenia [None]
  - Gait disturbance [None]
  - Therapy cessation [None]
  - Retching [None]
  - Dizziness [None]

NARRATIVE: CASE EVENT DATE: 20180115
